FAERS Safety Report 10057789 (Version 1)
Quarter: 2014Q2

REPORT INFORMATION
  Report Type: Spontaneous
  Country: US (occurrence: US)
  Receive Date: 20140404
  Receipt Date: 20140404
  Transmission Date: 20141212
  Serious: No
  Sender: FDA-Public Use
  Company Number: US-009507513-1404USA003026

PATIENT
  Sex: Female

DRUGS (2)
  1. GANIRELIX ACETATE INJECTION [Suspect]
     Indication: PRODUCT USED FOR UNKNOWN INDICATION
     Dosage: 250 MICROGRAM, UNK
     Route: 058
  2. FOLLISTIM [Concomitant]
     Dosage: UNSPECIFIED DOSE/FREQUENCY

REACTIONS (1)
  - Ovarian hyperstimulation syndrome [Unknown]
